FAERS Safety Report 8461246-9 (Version None)
Quarter: 2012Q2

REPORT INFORMATION
  Report Type: 
  Country: None (occurrence: None)
  Receive Date: 20120619
  Receipt Date: 20120619
  Transmission Date: 20120825
  Serious: No
  Sender: FDA-Public Use
  Company Number: None

PATIENT
  Age: 79 Year
  Sex: Female
  Weight: 51.8 kg

DRUGS (1)
  1. OMNIPAQUE 350 [Suspect]

REACTIONS (2)
  - URTICARIA [None]
  - CHEST DISCOMFORT [None]
